FAERS Safety Report 4364845-9 (Version None)
Quarter: 2004Q2

REPORT INFORMATION
  Report Type: 
  Country: None (occurrence: None)
  Receive Date: 20040526
  Receipt Date: 20040426
  Transmission Date: 20050107
  Serious: No
  Sender: FDA-Public Use
  Company Number: US-GLAXOSMITHKLINE-A0508453A

PATIENT
  Age: 58 Year
  Sex: Female

DRUGS (5)
  1. LOTRONEX [Suspect]
     Indication: IRRITABLE BOWEL SYNDROME
     Dosage: 2MG TWICE PER DAY
     Route: 048
     Dates: start: 20021201
  2. PRAVACHOL [Concomitant]
  3. ESTRACE [Concomitant]
  4. IMODIUM [Concomitant]
  5. CALCIUM [Concomitant]

REACTIONS (4)
  - ABDOMINAL DISTENSION [None]
  - DRUG INEFFECTIVE [None]
  - FREQUENT BOWEL MOVEMENTS [None]
  - MUSCLE CRAMP [None]
